FAERS Safety Report 8152945-7 (Version None)
Quarter: 2012Q1

REPORT INFORMATION
  Report Type: 
  Country: None (occurrence: None)
  Receive Date: 20120103
  Receipt Date: 20111031
  Transmission Date: 20120608
  Serious: No
  Sender: FDA-Public Use
  Company Number: AE-2011-002926

PATIENT
  Age: 51 Year
  Sex: Female
  Weight: 83.4619 kg

DRUGS (5)
  1. NEURONTIN [Concomitant]
  2. INCIVEK [Suspect]
     Dosage: 2250 MG (750 MG,1 IN 8 HR),ORAL
     Route: 048
     Dates: start: 20111007
  3. KEPPRA [Concomitant]
  4. PEGINTERFERON (PEGINTERFERON ALFA-2A) [Concomitant]
  5. RIBASPHERE [Concomitant]

REACTIONS (3)
  - COUGH [None]
  - FEELING COLD [None]
  - HEADACHE [None]
